FAERS Safety Report 8128509-8 (Version None)
Quarter: 2012Q1

REPORT INFORMATION
  Report Type: 
  Country: None (occurrence: None)
  Receive Date: 20120210
  Receipt Date: 20120203
  Transmission Date: 20120608
  Serious: No
  Sender: FDA-Public Use
  Company Number: US-B.I. PHARMACEUTICALS,INC./RIDGEFIELD-2012-BP-02235BP

PATIENT
  Sex: Female

DRUGS (10)
  1. CARVEDILOL [Concomitant]
     Indication: ATRIAL FIBRILLATION
     Dosage: 50 MG
     Route: 048
     Dates: start: 20020101
  2. COQ-10 [Concomitant]
     Indication: ATRIAL FIBRILLATION
     Dosage: 200 MG
     Route: 048
     Dates: start: 20100101
  3. LOVASTATIN [Concomitant]
     Indication: HYPERCHOLESTEROLAEMIA
     Dosage: 20 MG
     Route: 048
     Dates: start: 20020101
  4. NIACIN [Concomitant]
     Indication: HYPERCHOLESTEROLAEMIA
     Dosage: 500 MG
     Route: 048
     Dates: start: 20020101
  5. FISH OIL [Concomitant]
     Indication: PROPHYLAXIS
     Dosage: 2400 MG
     Route: 048
     Dates: start: 20100101
  6. LISINOPRIL [Concomitant]
     Indication: HYPERTENSION
     Dosage: 80 MG
     Route: 048
     Dates: start: 20020101
  7. COUMADIN [Concomitant]
     Dosage: 5 MG
     Route: 048
     Dates: start: 20111101
  8. PRADAXA [Suspect]
     Indication: ATRIAL FIBRILLATION
     Dosage: 300 MG
     Route: 048
     Dates: start: 20100501, end: 20101101
  9. COUMADIN [Concomitant]
     Indication: ATRIAL FIBRILLATION
     Dosage: 3.75 MG
     Route: 048
     Dates: start: 20111101
  10. AMLODIPINE [Concomitant]
     Indication: ATRIAL FIBRILLATION
     Dosage: 10 MG
     Route: 048
     Dates: start: 20020101

REACTIONS (2)
  - OEDEMA PERIPHERAL [None]
  - DIZZINESS [None]
